FAERS Safety Report 7573825-1 (Version None)
Quarter: 2011Q2

REPORT INFORMATION
  Report Type: 
  Country: None (occurrence: None)
  Receive Date: 20110627
  Receipt Date: 20100226
  Transmission Date: 20111010
  Serious: Yes (Other)
  Sender: FDA-Public Use
  Company Number: A0847045A

PATIENT
  Age: 86 Year
  Sex: Male

DRUGS (6)
  1. UNSPECIFIED MEDICATION [Concomitant]
  2. METOPROLOL TARTRATE [Concomitant]
  3. VERPAMIL HCL [Concomitant]
  4. ADVAIR DISKUS 100/50 [Suspect]
     Indication: CHRONIC OBSTRUCTIVE PULMONARY DISEASE
     Dosage: 1PUFF TWICE PER DAY
     Route: 055
     Dates: start: 19810101
  5. ATROVENT [Concomitant]
  6. ASPIRIN [Concomitant]

REACTIONS (9)
  - MICTURITION DISORDER [None]
  - CHAPPED LIPS [None]
  - DRUG INEFFECTIVE [None]
  - FOREIGN BODY SENSATION IN EYES [None]
  - DRY MOUTH [None]
  - CATARACT [None]
  - VISUAL IMPAIRMENT [None]
  - VISION BLURRED [None]
  - LACRIMATION INCREASED [None]
